FAERS Safety Report 6346717-3 (Version None)
Quarter: 2009Q3

REPORT INFORMATION
  Report Type: 
  Country: None (occurrence: None)
  Receive Date: 20090904
  Receipt Date: 20090828
  Transmission Date: 20100115
  Serious: Yes (Hospitalization)
  Sender: FDA-Public Use
  Company Number: 2009JP005296

PATIENT
  Sex: Male

DRUGS (4)
  1. VESICARE [Suspect]
     Dosage: 5 MG, ORAL
     Route: 048
  2. RIVOTRIL (CLONAZEPAM) PER ORAL NOS [Concomitant]
  3. ROHYPNOL (FLUNITRAZEPAM) PER ORAL NOS [Concomitant]
  4. URIEF PER ORAL NOS [Concomitant]

REACTIONS (4)
  - ASTHENIA [None]
  - DRUG TOXICITY [None]
  - LOSS OF CONSCIOUSNESS [None]
  - MYDRIASIS [None]
